FAERS Safety Report 22166081 (Version 2)
Quarter: 2023Q2

REPORT INFORMATION
  Report Type: Report from Study
  Country: US (occurrence: US)
  Receive Date: 20230403
  Receipt Date: 20230518
  Transmission Date: 20230722
  Serious: Yes (Other)
  Sender: FDA-Public Use
  Company Number: US-JAZZ-2021-US-015753

PATIENT
  Age: 29 Year
  Sex: Female

DRUGS (8)
  1. XYREM [Suspect]
     Active Substance: SODIUM OXYBATE
     Indication: Product used for unknown indication
     Dosage: 3 GRAM, BID
     Route: 048
     Dates: start: 200412, end: 200508
  2. XYREM [Suspect]
     Active Substance: SODIUM OXYBATE
     Indication: Narcolepsy
     Dosage: 4 GRAM, BID
     Route: 048
     Dates: start: 200508, end: 201610
  3. XYREM [Suspect]
     Active Substance: SODIUM OXYBATE
     Dosage: 4.5 GRAM, BID
     Route: 048
     Dates: start: 201610, end: 202108
  4. VITAMINS NOS [Concomitant]
     Active Substance: VITAMINS
     Dosage: UNK
     Dates: start: 20180101
  5. VITAMIN D3 [Concomitant]
     Active Substance: CHOLECALCIFEROL
     Dosage: UNK
     Dates: start: 20180101
  6. VITAMIN B12 [Concomitant]
     Active Substance: CYANOCOBALAMIN
     Dosage: UNK
     Dates: start: 20180101
  7. COLLAGEN PLUS C [Concomitant]
     Dosage: UNK
     Dates: start: 20220301
  8. PROBIOTIC BLEND [Concomitant]
     Dosage: UNK
     Dates: start: 20200301

REACTIONS (3)
  - Alcohol abuse [Unknown]
  - Dental caries [Unknown]
  - Anxiety [Unknown]

NARRATIVE: CASE EVENT DATE: 20050101
